FAERS Safety Report 8212824-3 (Version None)
Quarter: 2012Q1

REPORT INFORMATION
  Report Type: 
  Country: None (occurrence: None)
  Receive Date: 20120315
  Receipt Date: 20120307
  Transmission Date: 20120608
  Serious: Yes (Other)
  Sender: FDA-Public Use
  Company Number: PHHY2012AT005357

PATIENT
  Sex: Male

DRUGS (6)
  1. TAMSULOSIN HCL [Concomitant]
     Dosage: 100 MG, DAILY
  2. AMIODARONE HYDROCHLORIDE [Interacting]
     Dosage: 1 DF/DAY
     Route: 048
  3. METOPROLOL TARTRATE [Concomitant]
     Dosage: 47.5 MG, UNK
     Dates: start: 20110801
  4. ASPIRIN [Concomitant]
     Dosage: 100 MG, DAILY
  5. AMIODARONE HYDROCHLORIDE [Suspect]
     Dosage: 2 DF/DAY
     Route: 048
     Dates: start: 20111223
  6. ANAGRELIDE HCL [Interacting]
     Dosage: 9 MG, QW
     Dates: start: 20070201

REACTIONS (2)
  - DRUG INTERACTION [None]
  - BLOOD CREATININE INCREASED [None]
